FAERS Safety Report 6023301-2 (Version None)
Quarter: 2008Q4

REPORT INFORMATION
  Report Type: 
  Country: None (occurrence: None)
  Receive Date: 20081226
  Receipt Date: 20081226
  Transmission Date: 20090506
  Serious: No
  Sender: FDA-Public Use
  Company Number: None

PATIENT
  Sex: Male
  Weight: 94.8 kg

DRUGS (4)
  1. CASODEX [Suspect]
     Dosage: 5600 MG
  2. TAXOTERE [Suspect]
     Dosage: 161.25 MG
  3. LEUPROLIDE ACETATE [Suspect]
     Dosage: 22.5 MG
  4. PREDNISONE [Suspect]
     Dosage: 10 MG

REACTIONS (1)
  - ILL-DEFINED DISORDER [None]
